FAERS Safety Report 7825934-7 (Version None)
Quarter: 2011Q4

REPORT INFORMATION
  Report Type: 
  Country: None (occurrence: None)
  Receive Date: 20111019
  Receipt Date: 20111012
  Transmission Date: 20120403
  Serious: Yes (Hospitalization)
  Sender: FDA-Public Use
  Company Number: US-B.I. PHARMACEUTICALS,INC./RIDGEFIELD-2011-BP-24137BP

PATIENT
  Sex: Male

DRUGS (1)
  1. PRADAXA [Suspect]
     Indication: ATRIAL FIBRILLATION

REACTIONS (5)
  - RETROPERITONEAL HAEMORRHAGE [None]
  - RENAL HAEMORRHAGE [None]
  - HAEMATURIA [None]
  - NEPHROLITHIASIS [None]
  - RENAL HAEMATOMA [None]
